FAERS Safety Report 19047848 (Version 1)
Quarter: 2021Q1

REPORT INFORMATION
  Report Type: Spontaneous
  Country: US (occurrence: US)
  Receive Date: 20210324
  Receipt Date: 20210324
  Transmission Date: 20210420
  Serious: No
  Sender: FDA-Public Use
  Company Number: US-TEVA-2021-US-1891394

PATIENT
  Age: 37 Year

DRUGS (1)
  1. MUPIROCIN TEVA [Suspect]
     Active Substance: MUPIROCIN
     Indication: INFECTION
     Route: 065
     Dates: start: 20210307, end: 20210310

REACTIONS (2)
  - Pruritus [Recovered/Resolved]
  - Rash [Recovering/Resolving]

NARRATIVE: CASE EVENT DATE: 202103
